FAERS Safety Report 5798195-0 (Version None)
Quarter: 2008Q3

REPORT INFORMATION
  Report Type: 
  Country: None (occurrence: None)
  Receive Date: 20080702
  Receipt Date: 20080623
  Transmission Date: 20090109
  Serious: Yes (Hospitalization)
  Sender: FDA-Public Use
  Company Number: B0361081A

PATIENT
  Age: 47 Year
  Sex: Female

DRUGS (7)
  1. PAROXETINE HCL [Suspect]
     Route: 065
     Dates: start: 20010403
  2. ZOPICLONE [Concomitant]
     Route: 065
  3. LORAZEPAM [Concomitant]
     Route: 065
     Dates: start: 19850419
  4. PROZAC [Concomitant]
     Dosage: 10MG PER DAY
     Route: 065
     Dates: start: 20040315
  5. ATENOLOL [Concomitant]
     Route: 065
  6. DIAZEPAM [Concomitant]
     Dates: start: 20010327
  7. CIPRAMIL [Concomitant]
     Dates: start: 19990628

REACTIONS (31)
  - ANXIETY [None]
  - ASTHENIA [None]
  - BLOOD PRESSURE INCREASED [None]
  - BUNDLE BRANCH BLOCK LEFT [None]
  - CHEST DISCOMFORT [None]
  - CHEST PAIN [None]
  - CIRCULATORY COLLAPSE [None]
  - CYSTITIS [None]
  - DIZZINESS [None]
  - DRUG WITHDRAWAL SYNDROME [None]
  - DYSPNOEA [None]
  - EYE PAIN [None]
  - FATIGUE [None]
  - HEADACHE [None]
  - HYPERTENSION [None]
  - INFLUENZA LIKE ILLNESS [None]
  - LETHARGY [None]
  - MALAISE [None]
  - MITRAL VALVE INCOMPETENCE [None]
  - MITRAL VALVE PROLAPSE [None]
  - MUSCLE SPASMS [None]
  - MUSCULOSKELETAL STIFFNESS [None]
  - NEURALGIA [None]
  - PALPITATIONS [None]
  - PARAESTHESIA [None]
  - SYNCOPE [None]
  - TEARFULNESS [None]
  - TINNITUS [None]
  - TREMOR [None]
  - VISION BLURRED [None]
  - WITHDRAWAL SYNDROME [None]
